FAERS Safety Report 9772173 (Version 1)
Quarter: 2013Q4

REPORT INFORMATION
  Report Type: Spontaneous
  Country: US (occurrence: None)
  Receive Date: 20131218
  Receipt Date: 20131218
  Transmission Date: 20140711
  Serious: Yes (Life-Threatening, Hospitalization, Disabling, Other)
  Sender: FDA-Public Use
  Company Number: None

PATIENT
  Age: 14 Year
  Sex: Male
  Weight: 77.57 kg

DRUGS (1)
  1. METHYLPHENIDATE [Suspect]
     Dosage: 60 TAB; 2 PILLS
     Route: 048
     Dates: start: 20111103

REACTIONS (2)
  - Convulsion [None]
  - Chest pain [None]
